FAERS Safety Report 15838244 (Version 1)
Quarter: 2018Q4

REPORT INFORMATION
  Report Type: Spontaneous
  Country: US (occurrence: US)
  Receive Date: 20181222
  Receipt Date: 20181222
  Transmission Date: 20190205
  Serious: Yes (Hospitalization)
  Sender: FDA-Public Use
  Company Number: None

PATIENT
  Age: 80 Year
  Sex: Male
  Weight: 81.5 kg

DRUGS (2)
  1. LEUPROLIDE ACETATE. [Suspect]
     Active Substance: LEUPROLIDE ACETATE
     Dates: end: 20181004
  2. CASODEX [Suspect]
     Active Substance: BICALUTAMIDE
     Dates: end: 20181129

REACTIONS (12)
  - Atrioventricular block first degree [None]
  - Polyuria [None]
  - Ejection fraction decreased [None]
  - Left atrial dilatation [None]
  - Sinus bradycardia [None]
  - Pulmonary hypertension [None]
  - Sleep apnoea syndrome [None]
  - Acute left ventricular failure [None]
  - Myocardial infarction [None]
  - Cardiac failure [None]
  - Ischaemia [None]
  - Electrocardiogram T wave inversion [None]

NARRATIVE: CASE EVENT DATE: 20181129
